FAERS Safety Report 10250645 (Version 1)
Quarter: 2014Q2

REPORT INFORMATION
  Report Type: Spontaneous
  Country: IE (occurrence: IE)
  Receive Date: 20140620
  Receipt Date: 20140620
  Transmission Date: 20141212
  Serious: Yes (Other)
  Sender: FDA-Public Use
  Company Number: IE-BRISTOL-MYERS SQUIBB COMPANY-21045497

PATIENT
  Age: 1 Day
  Sex: Female
  Weight: 3.03 kg

DRUGS (5)
  1. ABILIFY [Suspect]
     Indication: SCHIZOPHRENIA
     Route: 048
     Dates: start: 20110126
  2. DENZAPINE [Suspect]
     Indication: SCHIZOPHRENIA
     Dates: start: 2010
  3. FLUOXETINE [Suspect]
     Indication: DEPRESSION
     Dates: start: 20101007
  4. ELTROXIN [Suspect]
     Indication: HYPOTHYROIDISM
     Dates: start: 20091027
  5. PROGESTERONE [Suspect]
     Dates: start: 201310, end: 201402

REACTIONS (3)
  - Listless [Recovered/Resolved]
  - Somnolence [Recovered/Resolved]
  - Foetal exposure during pregnancy [Unknown]
